FAERS Safety Report 10142524 (Version 2)
Quarter: 2015Q2

REPORT INFORMATION
  Report Type: Spontaneous
  Country: US (occurrence: US)
  Receive Date: 20140430
  Receipt Date: 20150519
  Transmission Date: 20150821
  Serious: Yes (Death)
  Sender: FDA-Public Use
  Company Number: US-BEH-2014042333

PATIENT
  Age: 14 Month
  Sex: Female

DRUGS (8)
  1. ANTIBIOTICS [Suspect]
     Active Substance: UNSPECIFIED INGREDIENT
     Indication: COMBINED IMMUNODEFICIENCY
  2. RITUXIMAB [Suspect]
     Active Substance: RITUXIMAB
     Indication: COMBINED IMMUNODEFICIENCY
  3. RITUXIMAB [Suspect]
     Active Substance: RITUXIMAB
     Indication: COMBINED IMMUNODEFICIENCY
  4. ACYCLOVIR. [Suspect]
     Active Substance: ACYCLOVIR
     Indication: EPSTEIN-BARR VIRUS ASSOCIATED LYMPHOMA
  5. ACYCLOVIR. [Suspect]
     Active Substance: ACYCLOVIR
     Indication: COMBINED IMMUNODEFICIENCY
  6. IVIG [Suspect]
     Active Substance: HUMAN IMMUNOGLOBULIN G
     Indication: COMBINED IMMUNODEFICIENCY
     Route: 042
  7. IVIG [Suspect]
     Active Substance: HUMAN IMMUNOGLOBULIN G
     Indication: COMBINED IMMUNODEFICIENCY
     Route: 042
  8. ANTIBIOTICS [Suspect]
     Active Substance: UNSPECIFIED INGREDIENT
     Indication: COMBINED IMMUNODEFICIENCY

REACTIONS (3)
  - Gastrointestinal haemorrhage [Fatal]
  - Respiratory failure [Fatal]
  - Drug ineffective [Fatal]
